FAERS Safety Report 11545157 (Version 4)
Quarter: 2016Q1

REPORT INFORMATION
  Report Type: Report from Study
  Country: US (occurrence: US)
  Receive Date: 20150924
  Receipt Date: 20160322
  Transmission Date: 20160525
  Serious: No
  Sender: FDA-Public Use
  Company Number: PHEH2015US018580

PATIENT
  Age: 35 Year
  Sex: Female
  Weight: 71.66 kg

DRUGS (1)
  1. GILENYA [Suspect]
     Active Substance: FINGOLIMOD HYDROCHLORIDE
     Indication: MULTIPLE SCLEROSIS
     Dosage: 0.5 MG, QD
     Route: 048
     Dates: start: 20150821

REACTIONS (7)
  - Diarrhoea [Unknown]
  - Ear infection [Recovered/Resolved]
  - Malaise [Recovered/Resolved]
  - Excessive cerumen production [Recovered/Resolved]
  - Weight decreased [Recovered/Resolved]
  - Influenza [Unknown]
  - Vomiting [Recovered/Resolved]

NARRATIVE: CASE EVENT DATE: 201510
